FAERS Safety Report 6189988-9 (Version None)
Quarter: 2009Q2

REPORT INFORMATION
  Report Type: 
  Country: None (occurrence: None)
  Receive Date: 20090512
  Receipt Date: 20090512
  Transmission Date: 20091009
  Serious: Yes (Other)
  Sender: FDA-Public Use
  Company Number: None

PATIENT
  Age: 31 Year
  Sex: Female
  Weight: 62.5964 kg

DRUGS (4)
  1. CIPROFLOXACIN [Suspect]
     Indication: CYSTITIS
     Dosage: 1 TABLET TWO TIMES DAILY PO
     Route: 048
     Dates: start: 20090422, end: 20090426
  2. FACTIVE [Suspect]
     Indication: BRONCHITIS
     Dosage: 1 TABLET DAILY PO
     Route: 048
     Dates: start: 20090427, end: 20090429
  3. FACTIVE [Suspect]
     Indication: SINUSITIS
     Dosage: 1 TABLET DAILY PO
     Route: 048
     Dates: start: 20090427, end: 20090429
  4. FACTIVE [Suspect]
     Indication: UPPER RESPIRATORY TRACT INFECTION
     Dosage: 1 TABLET DAILY PO
     Route: 048
     Dates: start: 20090427, end: 20090429

REACTIONS (3)
  - MUSCLE SPASMS [None]
  - MUSCULAR WEAKNESS [None]
  - PAIN IN EXTREMITY [None]
